FAERS Safety Report 5140804-3 (Version None)
Quarter: 2006Q4

REPORT INFORMATION
  Report Type: 
  Country: None (occurrence: None)
  Receive Date: 20061026
  Receipt Date: 20061011
  Transmission Date: 20070319
  Serious: Yes (Life-Threatening, Disabling)
  Sender: FDA-Public Use
  Company Number: 2006RR-04122

PATIENT
  Age: 79 Year
  Sex: Female
  Weight: 50 kg

DRUGS (20)
  1. SIMVASTATIN [Suspect]
     Indication: HYPERCHLORAEMIA
     Dosage: 40 MG, ORAL
     Route: 048
     Dates: start: 20060124, end: 20060805
  2. ADCAL D3 [Concomitant]
  3. ADCAL D3 [Concomitant]
  4. AMLODIPINE [Concomitant]
  5. AQUEOUS CREAM [Concomitant]
  6. BECLOMETHASONE DIPROPIONATE [Concomitant]
  7. CANDESTARTAN CILEXETIL [Concomitant]
  8. CARVEDILOL [Concomitant]
  9. CLOPIDOGREL HYDROGEN SULPHATE [Concomitant]
  10. CLOTRIMAZOLE [Concomitant]
  11. FUROSEMIDE [Concomitant]
  12. GLYCERYL TRINITRATE [Concomitant]
  13. IPRATROPIUM BROMIDE [Concomitant]
  14. LEVOTHYROXINE SODIUM [Concomitant]
  15. LORATADINE [Concomitant]
  16. OMEPRAZOLE [Concomitant]
  17. ACETAMINOPHEN [Concomitant]
  18. SALBUTAMOL (SALBUTAMOL) [Concomitant]
  19. SENNA [Concomitant]
  20. TRAXAM [Concomitant]

REACTIONS (1)
  - MYOSITIS [None]
